FAERS Safety Report 6757800-2 (Version None)
Quarter: 2010Q2

REPORT INFORMATION
  Report Type: 
  Country: None (occurrence: None)
  Receive Date: 20100607
  Receipt Date: 20100607
  Transmission Date: 20101027
  Serious: No
  Sender: FDA-Public Use
  Company Number: JP-ELI_LILLY_AND_COMPANY-JP201004006580

PATIENT
  Age: 67 Year
  Sex: Female
  Weight: 40.5 kg

DRUGS (8)
  1. HUMACART NPH [Suspect]
     Dosage: 12 IU, DAILY (1/D)
     Route: 058
  2. PEGINTERFERON ALFA-2A [Concomitant]
     Indication: HEPATITIS C
     Dosage: 180 UG, WEEKLY (1/W)
     Route: 042
     Dates: start: 20050101, end: 20060401
  3. PEGINTERFERON ALFA-2A [Concomitant]
     Dosage: 180 UG, WEEKLY (1/W)
     Route: 042
     Dates: start: 20060801
  4. PEGINTERFERON ALFA-2B [Concomitant]
     Indication: HEPATITIS C
     Dosage: 1.5 UG/KG
     Route: 042
     Dates: start: 20050101, end: 20060401
  5. PEGINTERFERON ALFA-2B [Concomitant]
     Dosage: 1.5 UG/KG, WEEKLY (1/W)
     Route: 042
     Dates: start: 20060801
  6. RIBAVIRIN [Concomitant]
     Indication: HEPATITIS C
     Dosage: UNK, UNK
     Dates: start: 20050101, end: 20060401
  7. RIBAVIRIN [Concomitant]
     Dates: start: 20060801
  8. INSULIN ASPART [Concomitant]
     Indication: TYPE 1 DIABETES MELLITUS

REACTIONS (15)
  - ANTI-GAD ANTIBODY POSITIVE [None]
  - ANTI-SS-A ANTIBODY POSITIVE [None]
  - ANTI-SS-B ANTIBODY POSITIVE [None]
  - ARTHRALGIA [None]
  - AUTOIMMUNE THYROIDITIS [None]
  - DRY EYE [None]
  - DYSPHAGIA [None]
  - GOITRE [None]
  - HYPERGLYCAEMIA [None]
  - HYPOGLYCAEMIA [None]
  - LYMPHOPENIA [None]
  - NO ADVERSE EVENT [None]
  - PAROTID GLAND INFLAMMATION [None]
  - RHEUMATOID FACTOR POSITIVE [None]
  - SJOGREN'S SYNDROME [None]
